FAERS Safety Report 4815218-3 (Version None)
Quarter: 2005Q4

REPORT INFORMATION
  Report Type: 
  Country: None (occurrence: None)
  Receive Date: 20051028
  Receipt Date: 20050426
  Transmission Date: 20060501
  Serious: Yes (Life-Threatening, Hospitalization, Disabling)
  Sender: FDA-Public Use
  Company Number: US-MERCK-0504USA04655

PATIENT
  Age: 79 Year
  Sex: Female
  Weight: 68 kg

DRUGS (1)
  1. VIOXX [Suspect]
     Indication: OSTEOARTHRITIS
     Route: 048
     Dates: start: 20010221, end: 20040420

REACTIONS (3)
  - ESSENTIAL THROMBOCYTHAEMIA [None]
  - TRANSIENT ISCHAEMIC ATTACK [None]
  - ULCER HAEMORRHAGE [None]
